FAERS Safety Report 16236908 (Version 1)
Quarter: 2019Q2

REPORT INFORMATION
  Report Type: Spontaneous
  Country: FR (occurrence: FR)
  Receive Date: 20190425
  Receipt Date: 20190425
  Transmission Date: 20190711
  Serious: Yes (Hospitalization)
  Sender: FDA-Public Use
  Company Number: FR-TEVA-2019-FR-1041640

PATIENT
  Age: 76 Year
  Sex: Female
  Weight: 88 kg

DRUGS (3)
  1. CARBOPLATINE TEVA [Suspect]
     Active Substance: CARBOPLATIN
     Indication: OVARIAN CANCER
     Route: 042
     Dates: start: 20190322, end: 20190322
  2. ONDANSETRON [Concomitant]
     Active Substance: ONDANSETRON
     Indication: PROPHYLAXIS
     Dosage: 8 MILLIGRAM DAILY;
     Route: 065
     Dates: start: 20190322, end: 20190322
  3. METHYLPREDNISOLONE. [Concomitant]
     Active Substance: METHYLPREDNISOLONE
     Indication: PROPHYLAXIS
     Dosage: 60 MILLIGRAM DAILY;
     Route: 065
     Dates: start: 20190322, end: 20190322

REACTIONS (4)
  - Hypotension [Recovered/Resolved]
  - Tremor [Recovered/Resolved]
  - Urinary incontinence [Recovered/Resolved]
  - Oxygen saturation decreased [Recovered/Resolved]

NARRATIVE: CASE EVENT DATE: 20190322
